FAERS Safety Report 6133570-6 (Version None)
Quarter: 2009Q1

REPORT INFORMATION
  Report Type: 
  Country: None (occurrence: None)
  Receive Date: 20090324
  Receipt Date: 20090311
  Transmission Date: 20090719
  Serious: Yes (Other)
  Sender: FDA-Public Use
  Company Number: US023171

PATIENT
  Sex: Male

DRUGS (1)
  1. MODAFINIL [Suspect]
     Indication: SOMNOLENCE
     Dosage: ORAL
     Route: 048

REACTIONS (10)
  - ANXIETY [None]
  - DEPRESSED MOOD [None]
  - DRUG WITHDRAWAL SYNDROME [None]
  - HEADACHE [None]
  - INCORRECT ROUTE OF DRUG ADMINISTRATION [None]
  - INTENTIONAL DRUG MISUSE [None]
  - INTENTIONAL OVERDOSE [None]
  - LISTLESS [None]
  - MENTAL IMPAIRMENT [None]
  - SOMNOLENCE [None]
